FAERS Safety Report 7596348-2 (Version None)
Quarter: 2011Q3

REPORT INFORMATION
  Report Type: 
  Country: None (occurrence: None)
  Receive Date: 20110707
  Receipt Date: 20110628
  Transmission Date: 20111222
  Serious: Yes (Other)
  Sender: FDA-Public Use
  Company Number: IT-B.I. PHARMACEUTICALS,INC./RIDGEFIELD-2011-IT-00166IT

PATIENT
  Sex: Male

DRUGS (2)
  1. TRUVADA [Concomitant]
     Indication: HIV INFECTION
     Route: 048
     Dates: start: 20100311, end: 20110509
  2. VIRAMUNE [Suspect]
     Indication: HIV INFECTION
     Dosage: 400 MG
     Route: 048
     Dates: start: 20110418, end: 20110430

REACTIONS (3)
  - RASH MORBILLIFORM [None]
  - SKIN EXFOLIATION [None]
  - PYREXIA [None]
